FAERS Safety Report 15399300 (Version 1)
Quarter: 2018Q4

REPORT INFORMATION
  Report Type: Spontaneous
  Country: US (occurrence: US)
  Receive Date: 20180918
  Receipt Date: 20180918
  Transmission Date: 20190204
  Serious: No
  Sender: FDA-Public Use
  Company Number: US-HERITAGE PHARMACEUTICALS-2018HTG00073

PATIENT
  Age: 37 Year
  Sex: Male
  Weight: 99.77 kg

DRUGS (6)
  1. HYDROXYZINE [Suspect]
     Active Substance: HYDROXYZINE HYDROCHLORIDE
     Indication: DERMATITIS CONTACT
     Dosage: 25 MG, 1X/DAY AT BEDTIME AS NEEDED
     Route: 048
     Dates: start: 20180325, end: 20180325
  2. PREDNISONE. [Suspect]
     Active Substance: PREDNISONE
     Indication: DERMATITIS CONTACT
     Dosage: 40 MG, 1X/DAY
     Dates: start: 20180325
  3. HYDROXYZINE [Suspect]
     Active Substance: HYDROXYZINE HYDROCHLORIDE
     Dosage: 25 MG, ONCE
     Route: 048
     Dates: start: 20180329, end: 20180329
  4. UNSPECIFIED STEROID INJECTION [Suspect]
     Active Substance: UNSPECIFIED INGREDIENT
     Indication: DERMATITIS CONTACT
     Dosage: UNK
     Dates: start: 20180325
  5. LORATADINE. [Suspect]
     Active Substance: LORATADINE
     Indication: DERMATITIS CONTACT
     Dosage: 10 MG, 1X/DAY
     Dates: start: 20180325
  6. HYDROXYZINE [Suspect]
     Active Substance: HYDROXYZINE HYDROCHLORIDE
     Dosage: 50 MG, 1X/DAY AT BEDTIME AS NEEDED
     Route: 048
     Dates: start: 20180326, end: 20180328

REACTIONS (13)
  - Food allergy [Recovered/Resolved]
  - Tremor [Recovered/Resolved]
  - Muscle twitching [Recovering/Resolving]
  - Reaction to excipient [Recovered/Resolved]
  - Palpitations [Recovered/Resolved]
  - Irritability [Recovered/Resolved]
  - Somnolence [Recovered/Resolved]
  - Thinking abnormal [Recovered/Resolved]
  - Fatigue [Recovered/Resolved]
  - Nervousness [Recovering/Resolving]
  - Impatience [Recovered/Resolved]
  - Energy increased [Recovered/Resolved]
  - Heart rate increased [Recovered/Resolved]

NARRATIVE: CASE EVENT DATE: 20180325
